FAERS Safety Report 11259123 (Version 1)
Quarter: 2015Q3

REPORT INFORMATION
  Report Type: Spontaneous
  Country: CN (occurrence: CN)
  Receive Date: 20150710
  Receipt Date: 20150710
  Transmission Date: 20151125
  Serious: Yes (Hospitalization)
  Sender: FDA-Public Use
  Company Number: CN-PFIZER INC-2015228086

PATIENT
  Age: 2 Year
  Sex: Female
  Weight: 12 kg

DRUGS (3)
  1. SODIUM CHLORIDE. [Suspect]
     Active Substance: SODIUM CHLORIDE
     Indication: THERAPEUTIC PROCEDURE
     Dosage: 100 ML, 1X/DAY
     Route: 041
     Dates: start: 20130603, end: 20130603
  2. CEFOBID [Suspect]
     Active Substance: CEFOPERAZONE
     Indication: THERAPEUTIC PROCEDURE
     Dosage: 0.5 G, 2X/DAY
     Route: 041
     Dates: start: 20130603, end: 20130603
  3. CEFOBID [Suspect]
     Active Substance: CEFOPERAZONE
     Indication: INFECTION PROPHYLAXIS
     Dosage: 0.5 G, 2X/DAY
     Route: 041
     Dates: start: 20130603, end: 20130603

REACTIONS (2)
  - Crystal urine [Recovered/Resolved]
  - Renal disorder [Recovered/Resolved]

NARRATIVE: CASE EVENT DATE: 20130603
